FAERS Safety Report 10244301 (Version 1)
Quarter: 2014Q1

REPORT INFORMATION
  Report Type: Spontaneous
  Country: US (occurrence: None)
  Receive Date: 20140306
  Receipt Date: 20140306
  Transmission Date: 20141002
  Serious: Yes (Hospitalization)
  Sender: FDA-Public Use
  Company Number: 163-21880-13100938

PATIENT
  Age: 46 Year
  Sex: Male

DRUGS (2)
  1. REVLIMID ( LENALIDOMIDE) ( 5 MILLIGRAM, CAPSULES) [Suspect]
     Indication: PLASMA CELL MYELOMA
     Route: 048
     Dates: start: 201306
  2. LEVSIN (HYOSCYAMINE SULFATE) (TABLETS) [Concomitant]

REACTIONS (1)
  - Cholecystitis [None]
